FAERS Safety Report 4427423-9 (Version None)
Quarter: 2004Q3

REPORT INFORMATION
  Report Type: 
  Country: None (occurrence: None)
  Receive Date: 20040812
  Receipt Date: 20040730
  Transmission Date: 20050211
  Serious: Yes (Hospitalization)
  Sender: FDA-Public Use
  Company Number: CIP04001155

PATIENT
  Age: 54 Year
  Sex: Female
  Weight: 92.1 kg

DRUGS (5)
  1. ASACOL [Suspect]
     Indication: COLITIS ULCERATIVE
     Dosage: ORAL
     Route: 048
     Dates: end: 20040501
  2. VIOXX [Suspect]
     Indication: COLITIS ULCERATIVE
     Dosage: 25 MG AS NEEDED ORAL
     Route: 048
     Dates: end: 20040501
  3. ADVIL [Suspect]
     Dosage: AS NEEDED ORAL
     Route: 048
  4. MULTIVITAMIN [Suspect]
     Dosage: 4 TABLET 3 DAILY
  5. BENADRYL ^PFIZER WARNER LAMBERT^ [Concomitant]

REACTIONS (5)
  - ANTINUCLEAR ANTIBODY POSITIVE [None]
  - CHEST PAIN [None]
  - PERICARDIAL EFFUSION [None]
  - PERICARDITIS [None]
  - RED BLOOD CELL SEDIMENTATION RATE INCREASED [None]
